FAERS Safety Report 18080354 (Version 2)
Quarter: 2020Q3

REPORT INFORMATION
  Report Type: Spontaneous
  Country: IT (occurrence: IT)
  Receive Date: 20200728
  Receipt Date: 20200903
  Transmission Date: 20201103
  Serious: Yes (Other)
  Sender: FDA-Public Use
  Company Number: IT-BAYER-2020-148153

PATIENT
  Age: 57 Year
  Sex: Male

DRUGS (1)
  1. NEXAVAR [Suspect]
     Active Substance: SORAFENIB
     Indication: HEPATOCELLULAR CARCINOMA
     Dosage: UNK
     Dates: start: 2018, end: 201809

REACTIONS (4)
  - Hepatocellular carcinoma [None]
  - Rash [None]
  - Skin toxicity [None]
  - Skin discolouration [None]

NARRATIVE: CASE EVENT DATE: 201809
